FAERS Safety Report 8586329-4 (Version None)
Quarter: 2012Q3

REPORT INFORMATION
  Report Type: 
  Country: None (occurrence: None)
  Receive Date: 20120810
  Receipt Date: 19881102
  Transmission Date: 20120928
  Serious: Yes (Hospitalization)
  Sender: FDA-Public Use
  Company Number: US-ROCHE-1098822

PATIENT
  Age: 51 Year
  Sex: Male

DRUGS (6)
  1. MORPHINE [Concomitant]
  2. ATROPINE [Concomitant]
  3. HEPARIN [Concomitant]
  4. ACTIVASE [Suspect]
     Indication: MYOCARDIAL INFARCTION
  5. DOPAMINE HCL [Concomitant]
  6. NITROGLYCERIN [Concomitant]

REACTIONS (3)
  - INJURY [None]
  - BLOOD CREATINE PHOSPHOKINASE INCREASED [None]
  - ACCELERATED IDIOVENTRICULAR RHYTHM [None]
